FAERS Safety Report 7753096-3 (Version None)
Quarter: 2011Q3

REPORT INFORMATION
  Report Type: 
  Country: None (occurrence: None)
  Receive Date: 20110913
  Receipt Date: 20110829
  Transmission Date: 20111222
  Serious: Yes (Life-Threatening, Hospitalization)
  Sender: FDA-Public Use
  Company Number: THQ2011A05415

PATIENT
  Age: 74 Year
  Sex: Male

DRUGS (2)
  1. ACTOS [Suspect]
     Indication: DIABETES MELLITUS
     Dosage: 30 MG (1 D), PER ORAL
     Route: 048
     Dates: start: 20070726, end: 20110622
  2. INSULIN GLARGINE [Concomitant]

REACTIONS (1)
  - BLADDER CANCER [None]
